FAERS Safety Report 5608475-7 (Version None)
Quarter: 2008Q1

REPORT INFORMATION
  Report Type: 
  Country: None (occurrence: None)
  Receive Date: 20080125
  Receipt Date: 20080114
  Transmission Date: 20080703
  Serious: Yes (Other)
  Sender: FDA-Public Use
  Company Number: CHPA2008US00870

PATIENT
  Age: 2 Year
  Sex: Male

DRUGS (1)
  1. TRIAMINIC LONG ACT COUGH COLD (NCH)(DEXTROMETHORPHAN HYDROBROMIDE, PSE [Suspect]
     Indication: COUGH
     Dosage: ORAL
     Route: 048

REACTIONS (1)
  - CONVULSION [None]
